FAERS Safety Report 18019132 (Version 1)
Quarter: 2020Q3

REPORT INFORMATION
  Report Type: Spontaneous
  Country: US (occurrence: US)
  Receive Date: 20200713
  Receipt Date: 20200713
  Transmission Date: 20201103
  Serious: Yes (Other)
  Sender: FDA-Public Use
  Company Number: None

PATIENT
  Age: 65 Year
  Sex: Male
  Weight: 90 kg

DRUGS (2)
  1. BABY ASPIRIN [Concomitant]
     Active Substance: ASPIRIN
  2. EQUATE ASPIRIN CHEWABLE [Suspect]
     Active Substance: ASPIRIN
     Dosage: ?          QUANTITY:1 TABLET(S);?
     Route: 048

REACTIONS (4)
  - Choking [None]
  - Oral pain [None]
  - Cough [None]
  - Oral discomfort [None]

NARRATIVE: CASE EVENT DATE: 20200710
